FAERS Safety Report 13558073 (Version 14)
Quarter: 2023Q1

REPORT INFORMATION
  Report Type: Report from Study
  Country: US (occurrence: US)
  Receive Date: 20170517
  Receipt Date: 20230209
  Transmission Date: 20230418
  Serious: No
  Sender: FDA-Public Use
  Company Number: US-ACADIA PHARMACEUTICALS INC.-ACA-2017-002942

PATIENT
  Sex: Female
  Weight: 59 kg

DRUGS (26)
  1. NUPLAZID [Suspect]
     Active Substance: PIMAVANSERIN TARTRATE
     Indication: Parkinson^s disease psychosis
     Dosage: 10 MG, QD
     Route: 048
  2. NUPLAZID [Suspect]
     Active Substance: PIMAVANSERIN TARTRATE
     Indication: Hallucination
     Dosage: 10 MG, QD
     Route: 048
     Dates: start: 20191007, end: 201910
  3. NUPLAZID [Suspect]
     Active Substance: PIMAVANSERIN TARTRATE
     Indication: Delusion
     Dosage: 10 MILLIGRAM, BID PER WEEK
     Route: 065
     Dates: start: 20191112
  4. NUPLAZID [Suspect]
     Active Substance: PIMAVANSERIN TARTRATE
     Dosage: 10 MILLIGRAM, TID
     Route: 048
  5. NUPLAZID [Suspect]
     Active Substance: PIMAVANSERIN TARTRATE
     Dosage: 10 MG, QD
     Route: 048
  6. NUPLAZID [Suspect]
     Active Substance: PIMAVANSERIN TARTRATE
     Dosage: 20 MG, QD
     Route: 048
  7. NUPLAZID [Suspect]
     Active Substance: PIMAVANSERIN TARTRATE
     Indication: Parkinson^s disease psychosis
     Dosage: 34 MG, QD
     Route: 048
     Dates: start: 20170331, end: 201705
  8. NUPLAZID [Suspect]
     Active Substance: PIMAVANSERIN TARTRATE
     Indication: Hallucination
     Dosage: 34 MG, QD
     Route: 048
     Dates: start: 20170509
  9. NUPLAZID [Suspect]
     Active Substance: PIMAVANSERIN TARTRATE
     Indication: Delusion
     Dosage: 17 MG, QD
     Route: 048
  10. CARBIDOPA\LEVODOPA [Concomitant]
     Active Substance: CARBIDOPA\LEVODOPA
     Dosage: 25/100 MG Q 2HRS
  11. LIPITOR [Concomitant]
     Active Substance: ATORVASTATIN CALCIUM
     Dosage: 20 MG, QD
     Route: 048
  12. CLONIDINE [Concomitant]
     Active Substance: CLONIDINE
     Dosage: 0.1 MG BID
  13. CYMBALTA [Concomitant]
     Active Substance: DULOXETINE HYDROCHLORIDE
     Dosage: 90 MG, QD
  14. CLARITIN [Concomitant]
     Active Substance: LORATADINE
     Dosage: 10 MG, QD
     Route: 048
  15. LIDOCAINE [Concomitant]
     Active Substance: LIDOCAINE
     Indication: Pain
  16. PRILOSEC [Concomitant]
     Active Substance: OMEPRAZOLE MAGNESIUM
     Dosage: 20 MG, QD
  17. SENNA-S [Concomitant]
     Active Substance: DOCUSATE SODIUM\SENNOSIDES
     Dosage: 4 UNK, UNK
  18. EXCEDRIN MIGRAINE [Concomitant]
     Active Substance: ACETAMINOPHEN\ASPIRIN\CAFFEINE
     Indication: Pain
  19. LORATADINE [Concomitant]
     Active Substance: LORATADINE
  20. SENOKOT-S [Concomitant]
     Active Substance: DOCUSATE SODIUM\SENNOSIDES
  21. CALCIUM [Concomitant]
     Active Substance: CALCIUM
  22. VITAMINS NOS [Concomitant]
     Active Substance: VITAMINS
  23. NORVASC [Concomitant]
     Active Substance: AMLODIPINE BESYLATE
     Dosage: 5 MG, QD
  24. VITAMINS [Concomitant]
     Active Substance: VITAMINS
  25. ZYRTEC [Concomitant]
     Active Substance: CETIRIZINE HYDROCHLORIDE
  26. LIDODERM [Concomitant]
     Active Substance: LIDOCAINE

REACTIONS (38)
  - Feeling abnormal [Unknown]
  - Incorrect dose administered [Unknown]
  - Inappropriate schedule of product administration [Unknown]
  - Swelling face [Not Recovered/Not Resolved]
  - Eyelid oedema [Not Recovered/Not Resolved]
  - Periorbital oedema [Not Recovered/Not Resolved]
  - Condition aggravated [Not Recovered/Not Resolved]
  - Anxiety [Not Recovered/Not Resolved]
  - Product dose omission issue [Recovered/Resolved]
  - Bowel movement irregularity [Not Recovered/Not Resolved]
  - Dizziness [Not Recovered/Not Resolved]
  - Balance disorder [Recovering/Resolving]
  - Tremor [Not Recovered/Not Resolved]
  - Posture abnormal [Unknown]
  - Parkinsonism [Unknown]
  - Urinary tract infection [Unknown]
  - Localised infection [Unknown]
  - Anxiety [Unknown]
  - Chest discomfort [Unknown]
  - Heart rate increased [Unknown]
  - Inappropriate schedule of product administration [Unknown]
  - Oedema peripheral [Unknown]
  - Oedema peripheral [Not Recovered/Not Resolved]
  - Peripheral swelling [Not Recovered/Not Resolved]
  - Peripheral swelling [Not Recovered/Not Resolved]
  - Fall [Unknown]
  - Dyspnoea [Unknown]
  - Oedema peripheral [Recovering/Resolving]
  - Oedema peripheral [Not Recovered/Not Resolved]
  - Hallucination, auditory [Recovered/Resolved]
  - Hallucination [Not Recovered/Not Resolved]
  - Peripheral swelling [Not Recovered/Not Resolved]
  - Gait disturbance [Not Recovered/Not Resolved]
  - Peripheral swelling [Not Recovered/Not Resolved]
  - Peripheral swelling [Recovered/Resolved]
  - Peripheral swelling [Not Recovered/Not Resolved]
  - Peripheral swelling [Not Recovered/Not Resolved]
  - Peripheral swelling [Not Recovered/Not Resolved]

NARRATIVE: CASE EVENT DATE: 20140101
